FAERS Safety Report 4719109-8 (Version None)
Quarter: 2005Q3

REPORT INFORMATION
  Report Type: 
  Country: None (occurrence: None)
  Receive Date: 20050720
  Receipt Date: 20050704
  Transmission Date: 20060218
  Serious: Yes (Death, Hospitalization)
  Sender: FDA-Public Use
  Company Number: S05-DEN-01398-01

PATIENT
  Age: 90 Year
  Sex: Female

DRUGS (3)
  1. EBIX (MEMANTINE) [Suspect]
     Indication: DEMENTIA ALZHEIMER'S TYPE
     Dosage: 20 MG QD PO
     Route: 048
     Dates: start: 20031218
  2. METHOTREXATE [Suspect]
     Indication: PSORIASIS
     Dosage: 7.5 MG QW PO
     Route: 048
     Dates: start: 20050202
  3. ASASANTINE [Concomitant]

REACTIONS (4)
  - DRUG INTERACTION [None]
  - GRANULOCYTOPENIA [None]
  - LEUKOPENIA [None]
  - THROMBOCYTOPENIA [None]
